FAERS Safety Report 5695149-X (Version None)
Quarter: 2008Q2

REPORT INFORMATION
  Report Type: 
  Country: None (occurrence: None)
  Receive Date: 20080404
  Receipt Date: 20080327
  Transmission Date: 20081010
  Serious: Yes (Hospitalization)
  Sender: FDA-Public Use
  Company Number: FR-ABBOTT-08P-056-0444467-00

PATIENT
  Sex: Male
  Weight: 63.5 kg

DRUGS (7)
  1. ZECLAR [Suspect]
     Indication: HELICOBACTER INFECTION
     Route: 048
     Dates: start: 20080223, end: 20080229
  2. PANTOPRAZOLE SODIUM [Interacting]
     Indication: HELICOBACTER INFECTION
     Route: 048
     Dates: start: 20080223, end: 20080229
  3. LENALIDOMIDE [Suspect]
     Indication: DRUG USE FOR UNKNOWN INDICATION
     Route: 048
     Dates: start: 20080201, end: 20080218
  4. COLCHICINE [Interacting]
     Indication: GOUT
     Route: 048
     Dates: start: 20080210, end: 20080225
  5. FENTANYL [Concomitant]
     Indication: PAIN
     Dosage: PATCH
  6. PREGABALINE [Concomitant]
     Indication: PAIN
  7. AMOXICILLINE-CLAVULANIC ACID [Concomitant]
     Indication: HELICOBACTER INFECTION
     Dosage: 1G/125MG
     Dates: start: 20080223, end: 20080229

REACTIONS (7)
  - DIARRHOEA [None]
  - DRUG INTERACTION [None]
  - HEPATITIS CHOLESTATIC [None]
  - NEUTROPENIA [None]
  - PROTEIN C DEFICIENCY [None]
  - PROTEIN S DEFICIENCY [None]
  - RENAL FAILURE [None]
